FAERS Safety Report 23076578 (Version 2)
Quarter: 2023Q4

REPORT INFORMATION
  Report Type: Spontaneous
  Country: RU (occurrence: RU)
  Receive Date: 20231017
  Receipt Date: 20231110
  Transmission Date: 20240109
  Serious: Yes (Hospitalization, Other)
  Sender: FDA-Public Use
  Company Number: RU-009507513-2310RUS008053

PATIENT
  Age: 62 Year
  Sex: Female

DRUGS (2)
  1. PEMBROLIZUMAB [Suspect]
     Active Substance: PEMBROLIZUMAB
     Indication: Clear cell renal cell carcinoma
     Dosage: UNK
     Dates: start: 20230203, end: 2023
  2. LENVATINIB MESYLATE [Suspect]
     Active Substance: LENVATINIB MESYLATE
     Indication: Clear cell renal cell carcinoma
     Dosage: UNK
     Route: 048
     Dates: start: 20230203, end: 2023

REACTIONS (4)
  - Hypothyroidism [Recovered/Resolved]
  - Diabetic metabolic decompensation [Recovered/Resolved]
  - Hospitalisation [Unknown]
  - Neutrophilia [Unknown]

NARRATIVE: CASE EVENT DATE: 20230101
